FAERS Safety Report 7486041-9 (Version None)
Quarter: 2011Q2

REPORT INFORMATION
  Report Type: 
  Country: None (occurrence: None)
  Receive Date: 20110517
  Receipt Date: 20110510
  Transmission Date: 20111010
  Serious: Yes (Other)
  Sender: FDA-Public Use
  Company Number: GB-PFIZER INC-2011099941

PATIENT
  Age: 77 Year
  Sex: Female

DRUGS (2)
  1. ZYVOX [Suspect]
     Dosage: 300 MG, 2X/DAY
  2. INSULIN [Concomitant]

REACTIONS (1)
  - HYPOGLYCAEMIA [None]
